FAERS Safety Report 22386294 (Version 2)
Quarter: 2023Q2

REPORT INFORMATION
  Report Type: Spontaneous
  Country: SK (occurrence: SK)
  Receive Date: 20230530
  Receipt Date: 20230614
  Transmission Date: 20230722
  Serious: Yes (Hospitalization, Other)
  Sender: FDA-Public Use
  Company Number: SK-TEVA-2023-SK-2890517

PATIENT
  Age: 39 Year
  Sex: Male

DRUGS (2)
  1. GENTAMICIN [Suspect]
     Active Substance: GENTAMICIN
     Indication: Inflammation
     Dosage: INTRAVENOUS CEFOTAXIME IN COMBINATION WITH GENTAMICIN
     Route: 042
  2. CEFOTAXIME [Suspect]
     Active Substance: CEFOTAXIME SODIUM
     Indication: Inflammation
     Dosage: INTRAVENOUS CEFOTAXIME IN COMBINATION WITH GENTAMICIN
     Route: 042

REACTIONS (3)
  - Megacolon [Recovered/Resolved]
  - Diarrhoea [Recovered/Resolved]
  - Clostridium difficile infection [Recovered/Resolved]
